FAERS Safety Report 7765766-1 (Version None)
Quarter: 2011Q3

REPORT INFORMATION
  Report Type: 
  Country: None (occurrence: None)
  Receive Date: 20110921
  Receipt Date: 20110414
  Transmission Date: 20111222
  Serious: No
  Sender: FDA-Public Use
  Company Number: US-BAYER-2011-033467

PATIENT
  Age: 69 Year
  Sex: Male
  Weight: 159 kg

DRUGS (8)
  1. ENALAPRIL MALEATE [Concomitant]
  2. ONGLYZA [Concomitant]
  3. GLIPIZIDE [Concomitant]
  4. GABAPENTIN [Concomitant]
  5. CLARINEX [Concomitant]
  6. ALEVE (CAPLET) [Suspect]
     Indication: ARTHRITIS
     Dosage: 2 U, BID
  7. AVAPRO [Concomitant]
  8. HYDROCHLOROTHIAZIDE [Concomitant]

REACTIONS (1)
  - DRUG INEFFECTIVE [None]
